FAERS Safety Report 25021911 (Version 2)
Quarter: 2025Q3

REPORT INFORMATION
  Report Type: Spontaneous
  Country: US (occurrence: US)
  Receive Date: 20250228
  Receipt Date: 20250810
  Transmission Date: 20251021
  Serious: No
  Sender: ALEXION PHARMACEUTICALS
  Company Number: US-AstraZeneca-CH-00816218A

PATIENT
  Age: 27 Year
  Sex: Female

DRUGS (1)
  1. AIRSUPRA [Suspect]
     Active Substance: ALBUTEROL SULFATE\BUDESONIDE
     Route: 065

REACTIONS (7)
  - Headache [Recovered/Resolved]
  - Vomiting [Recovering/Resolving]
  - Musculoskeletal stiffness [Recovering/Resolving]
  - Wheezing [Not Recovered/Not Resolved]
  - Nausea [Recovering/Resolving]
  - Chills [Recovering/Resolving]
  - Cough [Not Recovered/Not Resolved]

NARRATIVE: CASE EVENT DATE: 20250222
